FAERS Safety Report 25045498 (Version 1)
Quarter: 2025Q1

REPORT INFORMATION
  Report Type: Spontaneous
  Country: US (occurrence: None)
  Receive Date: 20250306
  Receipt Date: 20250306
  Transmission Date: 20250409
  Serious: Yes (Death, Hospitalization)
  Sender: FDA-CTU
  Company Number: None

PATIENT
  Age: 15 Year
  Sex: Female
  Weight: 76 kg

DRUGS (5)
  1. LAPINE T-LYMPHOCYTE IMMUNE GLOBULIN [Suspect]
     Active Substance: LAPINE T-LYMPHOCYTE IMMUNE GLOBULIN
     Dates: end: 20241028
  2. FLUDARABINE PHOSPHATE [Suspect]
     Active Substance: FLUDARABINE PHOSPHATE
     Dates: end: 20241105
  3. MELPHALAN [Suspect]
     Active Substance: MELPHALAN
     Dates: end: 20241105
  4. RITUXIMAB [Suspect]
     Active Substance: RITUXIMAB
     Dates: end: 20241106
  5. THIOTEPA [Suspect]
     Active Substance: THIOTEPA
     Dates: end: 20241104

REACTIONS (7)
  - Venoocclusive liver disease [None]
  - Acute hepatic failure [None]
  - Hypervolaemia [None]
  - Haemofiltration [None]
  - Respiratory failure [None]
  - Haemodynamic instability [None]
  - Multiple organ dysfunction syndrome [None]

NARRATIVE: CASE EVENT DATE: 20241202
